FAERS Safety Report 12738679 (Version 1)
Quarter: 2016Q3

REPORT INFORMATION
  Report Type: Spontaneous
  Country: US (occurrence: US)
  Receive Date: 20160912
  Receipt Date: 20160912
  Transmission Date: 20161109
  Serious: Yes (Other)
  Sender: FDA-Public Use
  Company Number: None

PATIENT
  Age: 70 Year
  Sex: Female
  Weight: 67.6 kg

DRUGS (1)
  1. LANREOTIDE [Suspect]
     Active Substance: LANREOTIDE
     Indication: NEUROENDOCRINE TUMOUR
     Dosage: OTHER STRENGTH:;OTHER DOSE:;OTHER FREQUENCY:MONTHLY;OTHER ROUTE:
     Route: 030

REACTIONS (6)
  - Diarrhoea [None]
  - Fatigue [None]
  - Abdominal pain [None]
  - Blood pressure increased [None]
  - Abdominal distension [None]
  - Palpitations [None]

NARRATIVE: CASE EVENT DATE: 20160311
